FAERS Safety Report 23123443 (Version 1)
Quarter: 2023Q4

REPORT INFORMATION
  Report Type: Spontaneous
  Country: US (occurrence: US)
  Receive Date: 20231030
  Receipt Date: 20231030
  Transmission Date: 20240110
  Serious: No
  Sender: FDA-Public Use
  Company Number: US-OPELLA-2023OHG009759

PATIENT
  Sex: Male

DRUGS (7)
  1. ALLEGRA-D [Suspect]
     Active Substance: FEXOFENADINE HYDROCHLORIDE\PSEUDOEPHEDRINE HYDROCHLORIDE
  2. ALLEGRA D-12 HOUR [Suspect]
     Active Substance: FEXOFENADINE HYDROCHLORIDE\PSEUDOEPHEDRINE HYDROCHLORIDE
     Dates: start: 20230531
  3. MUCINEX [Suspect]
     Active Substance: GUAIFENESIN
     Dates: start: 20230531
  4. SODIUM OXYBATE [Suspect]
     Active Substance: SODIUM OXYBATE
     Route: 048
  5. SODIUM OXYBATE [Suspect]
     Active Substance: SODIUM OXYBATE
  6. SODIUM OXYBATE [Suspect]
     Active Substance: SODIUM OXYBATE
     Route: 048
  7. FLONASE ALLERGY RELIEF [Suspect]
     Active Substance: FLUTICASONE PROPIONATE
     Dates: start: 20230531

REACTIONS (4)
  - Off label use [Unknown]
  - Drug interaction [Unknown]
  - Drug ineffective [Unknown]
  - Hiccups [Unknown]
